FAERS Safety Report 7679482-8 (Version None)
Quarter: 2011Q3

REPORT INFORMATION
  Report Type: 
  Country: None (occurrence: None)
  Receive Date: 20110812
  Receipt Date: 20110812
  Transmission Date: 20111222
  Serious: Yes (Other)
  Sender: FDA-Public Use
  Company Number: None

PATIENT
  Age: 17 Year
  Sex: Female
  Weight: 56.699 kg

DRUGS (1)
  1. RESTASIS [Suspect]

REACTIONS (1)
  - ORAL CANDIDIASIS [None]
